FAERS Safety Report 9795284 (Version 1)
Quarter: 2014Q1

REPORT INFORMATION
  Report Type: Report from Study
  Country: US (occurrence: US)
  Receive Date: 20140103
  Receipt Date: 20140103
  Transmission Date: 20141002
  Serious: Yes (Other)
  Sender: FDA-Public Use
  Company Number: US-ROCHE-1324920

PATIENT
  Age: 9 Year
  Sex: Female
  Weight: 37.3 kg

DRUGS (2)
  1. NUTROPIN AQ [Suspect]
     Indication: TURNER^S SYNDROME
     Dosage: 20 MG/2 ML
     Route: 058
  2. LEVOTHYROXINE [Concomitant]
     Indication: HYPOTHYROIDISM
     Route: 048
     Dates: start: 201303

REACTIONS (10)
  - Otitis media [Unknown]
  - Hypothyroidism [Unknown]
  - Rash papular [Unknown]
  - Skin hypopigmentation [Unknown]
  - Orthosis user [Unknown]
  - Chest pain [Unknown]
  - Tympanic membrane perforation [Unknown]
  - Headache [Unknown]
  - Sneezing [Unknown]
  - Alopecia [Unknown]
